FAERS Safety Report 9219704 (Version 1)
Quarter: 2013Q2

REPORT INFORMATION
  Report Type: Spontaneous
  Country: TH (occurrence: TH)
  Receive Date: 20130409
  Receipt Date: 20130409
  Transmission Date: 20140414
  Serious: Yes (Hospitalization)
  Sender: FDA-Public Use
  Company Number: TH-ROCHE-1206784

PATIENT
  Age: 72 Year
  Sex: Female
  Weight: 54 kg

DRUGS (6)
  1. ACTILYSE [Suspect]
     Indication: ISCHAEMIC STROKE
     Dosage: 50MG/VIAL
     Route: 042
     Dates: start: 20110430, end: 20110430
  2. ASA [Concomitant]
     Route: 048
  3. ATENOLOL [Concomitant]
     Indication: HYPERTENSION
     Route: 048
  4. ENALAPRIL [Concomitant]
     Indication: HYPERTENSION
     Route: 065
  5. PROPRANOLOL [Concomitant]
     Indication: HYPERTENSION
     Route: 065
  6. PROPYLTHIOURACIL [Concomitant]
     Indication: THYROID DISORDER
     Dosage: 1 TABLET, 3 TIMES DAILY
     Route: 048

REACTIONS (6)
  - Angioedema [Recovered/Resolved]
  - Hypotension [Recovered/Resolved]
  - Haemorrhage intracranial [Not Recovered/Not Resolved]
  - Cerebral haemorrhage [Not Recovered/Not Resolved]
  - Intraventricular haemorrhage [Not Recovered/Not Resolved]
  - Pneumonia [Not Recovered/Not Resolved]
